FAERS Safety Report 8555587-4 (Version None)
Quarter: 2012Q3

REPORT INFORMATION
  Report Type: 
  Country: None (occurrence: None)
  Receive Date: 20120731
  Receipt Date: 20120224
  Transmission Date: 20120928
  Serious: Yes (Hospitalization, Other)
  Sender: FDA-Public Use
  Company Number: US-ASTRAZENECA-2010SE23150

PATIENT
  Age: 43 Year
  Sex: Male
  Weight: 93 kg

DRUGS (11)
  1. NEURONTIN [Concomitant]
     Indication: EPILEPSY
     Dates: start: 20050101
  2. METHADON HYDROCHLORIDE TAB [Concomitant]
     Route: 048
     Dates: start: 20050101
  3. SEROQUEL XR [Suspect]
     Route: 048
     Dates: end: 20100401
  4. SEROQUEL XR [Suspect]
     Indication: HALLUCINATION, AUDITORY
     Route: 048
     Dates: start: 20050317
  5. DILANTIN [Concomitant]
     Route: 048
  6. NEURONTIN [Concomitant]
     Route: 048
  7. GLUCOPHAGE [Concomitant]
     Indication: DIABETES MELLITUS
     Route: 048
     Dates: start: 20050101
  8. PROZAC [Concomitant]
     Indication: DEPRESSION
  9. LEXAPRO [Concomitant]
     Route: 048
     Dates: start: 20050101
  10. DILANTIN [Concomitant]
     Indication: CONVULSION
     Dates: start: 20050101
  11. XANAX [Concomitant]
     Route: 048
     Dates: start: 20050101

REACTIONS (5)
  - BLOOD GLUCOSE INCREASED [None]
  - CONVULSION [None]
  - DIABETES MELLITUS INADEQUATE CONTROL [None]
  - DIABETES MELLITUS [None]
  - HEAD INJURY [None]
